FAERS Safety Report 5125400-6 (Version None)
Quarter: 2006Q3

REPORT INFORMATION
  Report Type: 
  Country: None (occurrence: None)
  Receive Date: 20060822
  Receipt Date: 20060508
  Transmission Date: 20061208
  Serious: No
  Sender: FDA-Public Use
  Company Number: PHEH2006US06022

PATIENT
  Age: 76 Year
  Sex: Female

DRUGS (1)
  1. ENABLEX [Suspect]
     Indication: HYPERTONIC BLADDER
     Dosage: 1/2 A 7.5 MG TABLET, QD
     Dates: start: 20060501, end: 20060505

REACTIONS (1)
  - CONSTIPATION [None]
